FAERS Safety Report 4503278-9 (Version None)
Quarter: 2004Q4

REPORT INFORMATION
  Report Type: 
  Country: None (occurrence: None)
  Receive Date: 20041112
  Receipt Date: 20041102
  Transmission Date: 20050328
  Serious: Yes (Hospitalization)
  Sender: FDA-Public Use
  Company Number: 2004CG02217

PATIENT
  Age: 44 Year
  Sex: Male
  Weight: 70 kg

DRUGS (1)
  1. IRESSA [Suspect]
     Indication: BRONCHIAL CARCINOMA
     Dosage: 250 MG QD PO
     Route: 048
     Dates: start: 20040214, end: 20040219

REACTIONS (2)
  - DIARRHOEA [None]
  - RECTAL HAEMORRHAGE [None]
